FAERS Safety Report 19188063 (Version 2)
Quarter: 2021Q2

REPORT INFORMATION
  Report Type: Spontaneous
  Country: US (occurrence: US)
  Receive Date: 20210427
  Receipt Date: 20210608
  Transmission Date: 20210717
  Serious: No
  Sender: FDA-Public Use
  Company Number: US-ACELRX PHARMACEUTICALS, INC-ACEL20210636

PATIENT
  Age: 66 Year
  Sex: Female

DRUGS (2)
  1. DSUVIA [Suspect]
     Active Substance: SUFENTANIL
     Indication: PLASTIC SURGERY
     Dosage: UNKNOWN
     Route: 060
     Dates: start: 20210422, end: 20210422
  2. FENTANYL. [Concomitant]
     Active Substance: FENTANYL
     Dosage: 100 MCG^S

REACTIONS (2)
  - Somnolence [Recovered/Resolved]
  - Delayed recovery from anaesthesia [Unknown]

NARRATIVE: CASE EVENT DATE: 20210422
